FAERS Safety Report 9473970 (Version 1)
Quarter: 2013Q3

REPORT INFORMATION
  Report Type: Spontaneous
  Country: US (occurrence: US)
  Receive Date: 20130823
  Receipt Date: 20130823
  Transmission Date: 20140515
  Serious: No
  Sender: FDA-Public Use
  Company Number: US-BRISTOL-MYERS SQUIBB COMPANY-17213448

PATIENT
  Age: 32 Year
  Sex: Female

DRUGS (6)
  1. SPRYCEL [Suspect]
     Dates: start: 201203
  2. LASIX [Concomitant]
  3. ORTHO TRI-CYCLEN [Concomitant]
  4. POTASSIUM [Concomitant]
  5. IRON [Concomitant]
  6. MULTIVITAMIN [Concomitant]

REACTIONS (3)
  - Hypoaesthesia [Unknown]
  - Pain [Unknown]
  - Nausea [Unknown]
